FAERS Safety Report 20291842 (Version 1)
Quarter: 2022Q1

REPORT INFORMATION
  Report Type: Spontaneous
  Country: US (occurrence: US)
  Receive Date: 20220104
  Receipt Date: 20220104
  Transmission Date: 20220423
  Serious: No
  Sender: FDA-Public Use
  Company Number: US-ABBVIE-20K-163-3392280-00

PATIENT
  Age: 77 Year
  Sex: Male

DRUGS (3)
  1. LUPRON [Suspect]
     Active Substance: LEUPROLIDE ACETATE
     Indication: Product used for unknown indication
     Route: 065
  2. LUPRON [Suspect]
     Active Substance: LEUPROLIDE ACETATE
     Route: 065
  3. XTANDI [Suspect]
     Active Substance: ENZALUTAMIDE
     Indication: Prostate cancer
     Route: 048
     Dates: start: 201804

REACTIONS (6)
  - Underdose [Unknown]
  - Off label use [Unknown]
  - Lethargy [Unknown]
  - Dizziness [Unknown]
  - Hot flush [Recovered/Resolved]
  - Asthenia [Unknown]

NARRATIVE: CASE EVENT DATE: 20200130
